FAERS Safety Report 24549814 (Version 5)
Quarter: 2024Q4

REPORT INFORMATION
  Report Type: Spontaneous
  Country: US (occurrence: US)
  Receive Date: 20241025
  Receipt Date: 20241217
  Transmission Date: 20250115
  Serious: No
  Sender: PFIZER
  Company Number: US-PFIZER INC-202400273009

PATIENT
  Age: 14 Year
  Sex: Female
  Weight: 47.63 kg

DRUGS (4)
  1. GENOTROPIN [Suspect]
     Active Substance: SOMATROPIN
     Indication: Growth hormone deficiency
     Dosage: 1.4 MG, 1X/DAY [EVERY NIGHT]
  2. LEVOTHROID [Concomitant]
     Active Substance: LEVOTHYROXINE SODIUM
     Indication: Thyroid disorder
     Dosage: 1 DF, 1X/DAY
  3. DIAMOX SEQUELS [Concomitant]
     Active Substance: ACETAZOLAMIDE
     Dosage: 1 DF, 2X/DAY [ONE IN THE MORNING ONE AT NIGHT]
  4. CORTEF [Concomitant]
     Active Substance: HYDROCORTISONE
     Dosage: 5 MG [A FULL TABLET IN THE MORNING A HALF OF TABLET IN AFTERNOON AND A HALF OF TABLET AT NIGHT]

REACTIONS (2)
  - Device breakage [Unknown]
  - Drug dose omission by device [Unknown]
